FAERS Safety Report 5833998-5 (Version None)
Quarter: 2008Q3

REPORT INFORMATION
  Report Type: 
  Country: None (occurrence: None)
  Receive Date: 20080804
  Receipt Date: 20080804
  Transmission Date: 20090109
  Serious: Yes (Other)
  Sender: FDA-Public Use
  Company Number: None

PATIENT
  Age: 80 Year
  Sex: Female
  Weight: 63.5036 kg

DRUGS (1)
  1. FORTEO [Suspect]
     Indication: BONE DISORDER
     Dosage: 20MCG QD SQ
     Route: 058
     Dates: start: 20080715, end: 20080731

REACTIONS (4)
  - FEELING ABNORMAL [None]
  - FEELING HOT [None]
  - HYPOTENSION [None]
  - NAUSEA [None]
